FAERS Safety Report 23305312 (Version 1)
Quarter: 2023Q4

REPORT INFORMATION
  Report Type: Spontaneous
  Country: DE (occurrence: DE)
  Receive Date: 20231218
  Receipt Date: 20231218
  Transmission Date: 20240110
  Serious: Yes (Other)
  Sender: FDA-Public Use
  Company Number: DE-AUROBINDO-AUR-APL-2013-00984

PATIENT
  Age: 33 Year
  Sex: Female

DRUGS (5)
  1. RISPERIDONE [Suspect]
     Active Substance: RISPERIDONE
     Indication: Depression
     Dosage: UNK,0.5-1.0 MG
     Route: 065
     Dates: start: 200810, end: 2008
  2. SERTRALINE [Suspect]
     Active Substance: SERTRALINE HYDROCHLORIDE
     Indication: Depression
     Dosage: 200 MG,ONCE A DAY, FOR 13 MONTHS
     Route: 065
     Dates: end: 200809
  3. CITALOPRAM [Suspect]
     Active Substance: CITALOPRAM HYDROBROMIDE
     Indication: Depression
     Dosage: UNK UNK,UNK,,20-30 MG/DAY FOR 6 MONTHS
     Route: 065
     Dates: end: 200809
  4. FLUOXETINE HYDROCHLORIDE [Suspect]
     Active Substance: FLUOXETINE HYDROCHLORIDE
     Indication: Depression
     Dosage: 20 MG,ONCE A DAY,FOR 5 MONTHS
     Route: 065
     Dates: end: 200809
  5. FLUOXETINE HYDROCHLORIDE [Suspect]
     Active Substance: FLUOXETINE HYDROCHLORIDE
     Indication: Illusion

REACTIONS (4)
  - Drug abuse [Unknown]
  - Drug ineffective [Unknown]
  - Weight increased [Unknown]
  - Product use in unapproved indication [Unknown]
